FAERS Safety Report 9543616 (Version 1)
Quarter: 2013Q3

REPORT INFORMATION
  Report Type: Spontaneous
  Country: US (occurrence: US)
  Receive Date: 20130923
  Receipt Date: 20130923
  Transmission Date: 20140515
  Serious: Yes (Death, Life-Threatening, Other)
  Sender: FDA-Public Use
  Company Number: US-COVIDIEN/TYCO HEALTHCARE/MALLINCKRODT-T201304352

PATIENT
  Age: 23 Year
  Sex: Male

DRUGS (3)
  1. METHADONE [Suspect]
     Indication: PRODUCT USED FOR UNKNOWN INDICATION
     Dosage: 40 MG, SINGLE
     Route: 048
  2. ALPRAZOLAM [Suspect]
     Dosage: 3 MG, SINGLE
  3. CANNABIS [Suspect]
     Dosage: UNK
     Route: 065

REACTIONS (6)
  - Brain injury [Fatal]
  - Rhabdomyolysis [Fatal]
  - Multi-organ failure [Fatal]
  - Cardio-respiratory arrest [None]
  - Coma [Fatal]
  - Drug diversion [Unknown]
